FAERS Safety Report 9107414 (Version 1)
Quarter: 2013Q1

REPORT INFORMATION
  Report Type: Spontaneous
  Country: US (occurrence: US)
  Receive Date: 20130221
  Receipt Date: 20130221
  Transmission Date: 20140127
  Serious: Yes (Hospitalization)
  Sender: FDA-Public Use
  Company Number: US-ELI_LILLY_AND_COMPANY-US201302003638

PATIENT
  Age: 75 Year
  Sex: Male

DRUGS (1)
  1. EFFIENT [Suspect]
     Indication: STENT PLACEMENT
     Dosage: 10 MG, QD
     Dates: start: 20121012, end: 20130211

REACTIONS (5)
  - Vomiting [Unknown]
  - Dehydration [Unknown]
  - Constipation [Unknown]
  - Dizziness [Unknown]
  - Feeling abnormal [Unknown]
